FAERS Safety Report 10652814 (Version 5)
Quarter: 2017Q1

REPORT INFORMATION
  Report Type: Spontaneous
  Country: US (occurrence: US)
  Receive Date: 20141215
  Receipt Date: 20170209
  Transmission Date: 20170428
  Serious: Yes (Other)
  Sender: FDA-Public Use
  Company Number: US-ELI_LILLY_AND_COMPANY-US201412001550

PATIENT
  Sex: Female
  Weight: 51 kg

DRUGS (7)
  1. VICODIN [Concomitant]
     Active Substance: ACETAMINOPHEN\HYDROCODONE BITARTRATE
     Indication: PRODUCT USED FOR UNKNOWN INDICATION
     Dosage: UNK, UNKNOWN
     Route: 048
  2. CYMBALTA [Suspect]
     Active Substance: DULOXETINE HYDROCHLORIDE
     Dosage: 30 MG, QOD
     Route: 048
     Dates: start: 20130320, end: 2013
  3. CELEBREX [Concomitant]
     Active Substance: CELECOXIB
     Indication: PRODUCT USED FOR UNKNOWN INDICATION
     Dosage: 200 MG, BID
     Route: 048
  4. CYMBALTA [Suspect]
     Active Substance: DULOXETINE HYDROCHLORIDE
     Indication: PAIN
     Dosage: 60 MG, QD
     Route: 048
  5. ULTRAN                             /01269001/ [Concomitant]
     Indication: PRODUCT USED FOR UNKNOWN INDICATION
     Dosage: 50 MG, EVERY 6 HRS
     Route: 048
  6. CYMBALTA [Suspect]
     Active Substance: DULOXETINE HYDROCHLORIDE
     Indication: DEPRESSION
     Dosage: 30 MG, QD
     Route: 065
     Dates: start: 20120227
  7. MOBIC [Concomitant]
     Active Substance: MELOXICAM
     Indication: PRODUCT USED FOR UNKNOWN INDICATION
     Dosage: 15 MG, QD
     Route: 048

REACTIONS (28)
  - Vertigo [Unknown]
  - Paraesthesia [Unknown]
  - Mood swings [Unknown]
  - Mononeuritis [Unknown]
  - Nausea [Unknown]
  - Insomnia [Unknown]
  - Hyperhidrosis [Unknown]
  - Headache [Unknown]
  - Irritability [Unknown]
  - Tendonitis [Unknown]
  - Drug withdrawal syndrome [Unknown]
  - Neuropathy peripheral [Unknown]
  - Sleep disorder [Unknown]
  - Fatigue [Unknown]
  - Neuropathic muscular atrophy [Unknown]
  - Dizziness [Recovered/Resolved]
  - Paraesthesia [Unknown]
  - Hypoaesthesia [Unknown]
  - Insomnia [Unknown]
  - Muscle contractions involuntary [Unknown]
  - Synovial cyst [Unknown]
  - Agitation [Unknown]
  - Suicidal ideation [Unknown]
  - Confusional state [Unknown]
  - Muscular weakness [Unknown]
  - Nightmare [Unknown]
  - Affect lability [Unknown]
  - Tremor [Unknown]

NARRATIVE: CASE EVENT DATE: 2013
